FAERS Safety Report 4984061-7 (Version None)
Quarter: 2006Q1

REPORT INFORMATION
  Report Type: 
  Country: None (occurrence: None)
  Receive Date: 20060302
  Receipt Date: 20051128
  Transmission Date: 20060701
  Serious: No
  Sender: FDA-Public Use
  Company Number: S05-USA-05058-01

PATIENT

DRUGS (1)
  1. CAMPRAL [Suspect]
     Indication: ALCOHOLISM

REACTIONS (2)
  - VOMITING [None]
  - WEIGHT DECREASED [None]
